FAERS Safety Report 20163190 (Version 4)
Quarter: 2025Q1

REPORT INFORMATION
  Report Type: Report from Study
  Country: CA (occurrence: CA)
  Receive Date: 20211209
  Receipt Date: 20250117
  Transmission Date: 20250409
  Serious: Yes (Other)
  Sender: SAMSUNG BIOEPIS
  Company Number: CA-SAMSUNG BIOEPIS-SB-2021-27360

PATIENT
  Age: 21 Year
  Sex: Male

DRUGS (5)
  1. ETANERCEPT [Suspect]
     Active Substance: ETANERCEPT
     Indication: Ankylosing spondylitis
     Dosage: 50 MG/ML;
     Dates: start: 20211115, end: 202501
  2. CELEBREX [Concomitant]
     Active Substance: CELECOXIB
     Indication: Ankylosing spondylitis
     Dates: end: 202412
  3. CELEBREX [Concomitant]
     Active Substance: CELECOXIB
     Dosage: UNKNOWN
  4. CELEBREX [Concomitant]
     Active Substance: CELECOXIB
  5. PREDNISONE [Concomitant]
     Active Substance: PREDNISONE
     Indication: Product used for unknown indication

REACTIONS (15)
  - Shock [Recovering/Resolving]
  - Ankylosing spondylitis [Unknown]
  - Injection site pain [Recovered/Resolved]
  - Neck pain [Unknown]
  - Costochondritis [Recovering/Resolving]
  - Conjunctivitis viral [Recovering/Resolving]
  - Psoriasis [Recovering/Resolving]
  - Drug ineffective [Unknown]
  - Back pain [Unknown]
  - Arthralgia [Unknown]
  - Joint swelling [Unknown]
  - Tenderness [Unknown]
  - Musculoskeletal stiffness [Unknown]
  - Pain [Unknown]
  - Fatigue [Unknown]

NARRATIVE: CASE EVENT DATE: 20211115
